FAERS Safety Report 9850748 (Version 3)
Quarter: 2014Q2

REPORT INFORMATION
  Report Type: Spontaneous
  Country: IT (occurrence: IT)
  Receive Date: 20140128
  Receipt Date: 20140418
  Transmission Date: 20141212
  Serious: Yes (Life-Threatening, Other)
  Sender: FDA-Public Use
  Company Number: IT-PFIZER INC-2014022438

PATIENT
  Age: 63 Year
  Sex: Male
  Weight: 56 kg

DRUGS (11)
  1. TYGACIL [Suspect]
     Indication: CELLULITIS
     Dosage: 100 MG, DAILY
     Route: 042
     Dates: start: 20140107, end: 20140119
  2. BISOPROLOL FUMARATE [Concomitant]
     Indication: HYPERTENSION
     Dosage: 5 MG, UNK
     Route: 048
     Dates: start: 20140107
  3. CARDIOASPIRIN [Concomitant]
     Indication: HEART DISEASE CONGENITAL
     Dosage: 100 MG, UNK
     Route: 048
     Dates: start: 20140101, end: 20140119
  4. ADENURIC [Concomitant]
     Indication: HYPERURICAEMIA
     Dosage: 80 MG, UNK
     Route: 048
     Dates: start: 20140117, end: 20140119
  5. BASSADO [Concomitant]
     Indication: CELLULITIS
     Dosage: 200 MG, UNK
     Route: 048
     Dates: start: 20140117, end: 20140119
  6. CLEXANE [Concomitant]
     Indication: THROMBOSIS PROPHYLAXIS
     Dosage: 4000 IU, UNK
     Route: 058
     Dates: start: 20140117, end: 20140119
  7. NEORECORMON [Concomitant]
     Indication: ANAEMIA
     Dosage: 9000 IU, UNK
     Route: 058
     Dates: start: 20140107, end: 20140117
  8. RETACRIT [Concomitant]
  9. PANTOPRAZOLE [Concomitant]
     Dosage: 40 MG
  10. XANAX [Concomitant]
  11. (APIDRA) INSULIN [Concomitant]

REACTIONS (6)
  - Cardiac failure [Not Recovered/Not Resolved]
  - Hypoglycaemia [Not Recovered/Not Resolved]
  - Jaundice [Not Recovered/Not Resolved]
  - Thrombocytopenia [Not Recovered/Not Resolved]
  - Dyspnoea [Not Recovered/Not Resolved]
  - Anuria [Unknown]
